FAERS Safety Report 21886457 (Version 1)
Quarter: 2023Q1

REPORT INFORMATION
  Report Type: Spontaneous
  Country: AT (occurrence: AT)
  Receive Date: 20230119
  Receipt Date: 20230119
  Transmission Date: 20230417
  Serious: Yes (Life-Threatening)
  Sender: FDA-Public Use
  Company Number: AT-GLAXOSMITHKLINE-AT2023GSK005892

PATIENT

DRUGS (25)
  1. BUPROPION [Suspect]
     Active Substance: BUPROPION
     Indication: Major depression
     Dosage: 150 MG, 1D(EXTENDED RELEASE)
     Route: 048
  2. LITHIUM [Suspect]
     Active Substance: LITHIUM
     Indication: Borderline personality disorder
     Dosage: 225 MG
  3. LITHIUM [Suspect]
     Active Substance: LITHIUM
     Indication: Major depression
  4. LORAZEPAM [Suspect]
     Active Substance: LORAZEPAM
     Indication: Anxiety
     Dosage: 2.5 MG
  5. LORAZEPAM [Suspect]
     Active Substance: LORAZEPAM
     Indication: Tension
  6. LORAZEPAM [Suspect]
     Active Substance: LORAZEPAM
     Indication: Agitation
  7. ESCITALOPRAM [Suspect]
     Active Substance: ESCITALOPRAM OXALATE
     Indication: Major depression
     Dosage: 30 MG, QD(RELATIVELY HIGH DOSE OF ESCITALOPRAM)
     Route: 048
  8. ESCITALOPRAM [Suspect]
     Active Substance: ESCITALOPRAM OXALATE
     Indication: Borderline personality disorder
  9. TRAZODONE [Suspect]
     Active Substance: TRAZODONE HYDROCHLORIDE
     Indication: Major depression
     Dosage: 150 MG, 1D(RETARD PREPARATION EVERY DAY IN THE EVENING)
     Route: 048
  10. ZOLPIDEM [Suspect]
     Active Substance: ZOLPIDEM TARTRATE
     Indication: Major depression
     Dosage: 10 MG, 1D
  11. CLONAZEPAM [Suspect]
     Active Substance: CLONAZEPAM
     Indication: Anxiety
     Dosage: 0.5 MG
  12. CLONAZEPAM [Suspect]
     Active Substance: CLONAZEPAM
     Indication: Tension
  13. CLONAZEPAM [Suspect]
     Active Substance: CLONAZEPAM
     Indication: Agitation
  14. CLONAZEPAM [Suspect]
     Active Substance: CLONAZEPAM
     Indication: Sedative therapy
  15. DULOXETINE [Suspect]
     Active Substance: DULOXETINE
     Indication: Major depression
     Dosage: UNK  60-180 MG
  16. CLOMIPRAMINE [Suspect]
     Active Substance: CLOMIPRAMINE
     Indication: Borderline personality disorder
     Dosage: UNK [UP TO 225 MG PER ORAL EVERY DAY]
     Route: 048
  17. CLOMIPRAMINE [Suspect]
     Active Substance: CLOMIPRAMINE
     Indication: Major depression
  18. ARIPIPRAZOLE [Suspect]
     Active Substance: ARIPIPRAZOLE
     Indication: Borderline personality disorder
     Dosage: 5 MG
  19. ARIPIPRAZOLE [Suspect]
     Active Substance: ARIPIPRAZOLE
     Indication: Major depression
  20. QUETIAPINE [Suspect]
     Active Substance: QUETIAPINE
     Indication: Borderline personality disorder
     Dosage: 25 MG
  21. QUETIAPINE [Suspect]
     Active Substance: QUETIAPINE
     Indication: Major depression
  22. RISPERIDONE [Suspect]
     Active Substance: RISPERIDONE
     Indication: Borderline personality disorder
     Dosage: 1 MG
  23. RISPERIDONE [Suspect]
     Active Substance: RISPERIDONE
     Indication: Major depression
  24. TOPIRAMATE [Suspect]
     Active Substance: TOPIRAMATE
     Indication: Major depression
     Dosage: 50 MG
  25. TOPIRAMATE [Suspect]
     Active Substance: TOPIRAMATE
     Indication: Borderline personality disorder

REACTIONS (4)
  - Therapy non-responder [Unknown]
  - Vertigo [Unknown]
  - Agitation [Unknown]
  - Tremor [Unknown]
